FAERS Safety Report 21248131 (Version 1)
Quarter: 2022Q3

REPORT INFORMATION
  Report Type: Spontaneous
  Country: US (occurrence: None)
  Receive Date: 20220823
  Receipt Date: 20220823
  Transmission Date: 20221027
  Serious: Yes (Hospitalization)
  Sender: FDA-Public Use
  Company Number: None

PATIENT
  Age: 62 Year
  Sex: Female
  Weight: 99.7 kg

DRUGS (1)
  1. REMICADE [Suspect]
     Active Substance: INFLIXIMAB
     Indication: Sarcoidosis
     Dosage: OTHER FREQUENCY : EVERY 4 WEEKS;?
     Route: 042
     Dates: start: 20220804, end: 20220817

REACTIONS (12)
  - Infusion related reaction [None]
  - Bone pain [None]
  - Chest discomfort [None]
  - Urticaria [None]
  - Pruritus [None]
  - Chest pain [None]
  - Vomiting [None]
  - Tachycardia [None]
  - Type IV hypersensitivity reaction [None]
  - Infusion site reaction [None]
  - Urticaria [None]
  - Immune-mediated adverse reaction [None]

NARRATIVE: CASE EVENT DATE: 20220817
